FAERS Safety Report 7059827-2 (Version None)
Quarter: 2010Q4

REPORT INFORMATION
  Report Type: 
  Country: None (occurrence: None)
  Receive Date: 20101025
  Receipt Date: 20101019
  Transmission Date: 20110411
  Serious: Yes (Other)
  Sender: FDA-Public Use
  Company Number: AU-PFIZER INC-2010132014

PATIENT
  Sex: Female

DRUGS (7)
  1. NORVASC [Suspect]
     Dosage: 5 MG, DAILY
  2. ASPIRIN [Concomitant]
  3. AVAPRO [Concomitant]
  4. LIPITOR [Concomitant]
  5. DIABEX XR [Concomitant]
  6. DIAMICRON [Concomitant]
  7. DILANTIN [Concomitant]

REACTIONS (1)
  - BLOOD GLUCOSE INCREASED [None]
